FAERS Safety Report 8428156-4 (Version None)
Quarter: 2012Q2

REPORT INFORMATION
  Report Type: 
  Country: None (occurrence: None)
  Receive Date: 20120611
  Receipt Date: 20110812
  Transmission Date: 20120825
  Serious: No
  Sender: FDA-Public Use
  Company Number: US-ASTRAZENECA-2010SE27461

PATIENT
  Age: 54 Year
  Sex: Female

DRUGS (9)
  1. NEXIUM [Suspect]
     Route: 048
  2. SEROQUEL [Suspect]
     Indication: SLEEP DISORDER
     Route: 048
     Dates: start: 20060101
  3. SINGULAIR [Concomitant]
  4. RHINOCORT [Suspect]
     Route: 045
  5. IRON SUPPLEMENT [Concomitant]
  6. SEROQUEL [Suspect]
     Indication: BIPOLAR DISORDER
     Route: 048
     Dates: start: 20060101
  7. SEROQUEL [Suspect]
     Indication: HALLUCINATION
     Route: 048
     Dates: start: 20060101
  8. TOPAMAX [Concomitant]
  9. LAMICTAL [Concomitant]

REACTIONS (5)
  - INFLUENZA LIKE ILLNESS [None]
  - MALAISE [None]
  - DRUG WITHDRAWAL SYNDROME [None]
  - INSOMNIA [None]
  - DRUG DOSE OMISSION [None]
